FAERS Safety Report 14188611 (Version 6)
Quarter: 2019Q1

REPORT INFORMATION
  Report Type: Report from Study
  Country: US (occurrence: US)
  Receive Date: 20171114
  Receipt Date: 20190125
  Transmission Date: 20190417
  Serious: Yes (Hospitalization)
  Sender: FDA-Public Use
  Company Number: US-ACTELION-A-US2017-162167

PATIENT
  Age: 77 Year
  Sex: Female

DRUGS (11)
  1. METOPROLOL. [Concomitant]
     Active Substance: METOPROLOL
  2. VITAMIN D [Concomitant]
     Active Substance: CHOLECALCIFEROL
  3. LIPITOR [Concomitant]
     Active Substance: ATORVASTATIN CALCIUM
  4. MAGNESIUM CITRATE. [Concomitant]
     Active Substance: MAGNESIUM CITRATE
  5. PEPCID [Concomitant]
     Active Substance: FAMOTIDINE
  6. DIAZEPAM. [Concomitant]
     Active Substance: DIAZEPAM
  7. OPSUMIT [Suspect]
     Active Substance: MACITENTAN
     Indication: PULMONARY ARTERIAL HYPERTENSION
     Dosage: 10 MG, QD
     Route: 048
     Dates: start: 20170713
  8. FUROSEMIDE. [Concomitant]
     Active Substance: FUROSEMIDE
  9. MULTAQ [Concomitant]
     Active Substance: DRONEDARONE
  10. TYLENOL [Concomitant]
     Active Substance: ACETAMINOPHEN
  11. TRAMADOL. [Concomitant]
     Active Substance: TRAMADOL

REACTIONS (10)
  - Nasal congestion [Unknown]
  - Pneumonia [Recovered/Resolved]
  - Vomiting [Recovering/Resolving]
  - Fluid retention [Recovering/Resolving]
  - Nausea [Unknown]
  - Rhinorrhoea [Unknown]
  - Cyanosis [Unknown]
  - Nasopharyngitis [Unknown]
  - Diarrhoea [Recovered/Resolved]
  - Dyspnoea [Unknown]

NARRATIVE: CASE EVENT DATE: 20171030
